FAERS Safety Report 18813461 (Version 3)
Quarter: 2021Q1

REPORT INFORMATION
  Report Type: Spontaneous
  Country: US (occurrence: US)
  Receive Date: 20210201
  Receipt Date: 20210217
  Transmission Date: 20210419
  Serious: Yes (Other)
  Sender: FDA-Public Use
  Company Number: US-AMGEN-USASP2021011669

PATIENT
  Age: 57 Year
  Sex: Female

DRUGS (1)
  1. PROLIA [Suspect]
     Active Substance: DENOSUMAB
     Indication: OSTEOPOROSIS
     Dosage: 60 MILLIGRAM, Q6MO
     Route: 065
     Dates: start: 2019

REACTIONS (5)
  - Rib fracture [Unknown]
  - Intervertebral disc operation [Unknown]
  - Bone pain [Unknown]
  - Bone scan abnormal [Unknown]
  - Fall [Unknown]

NARRATIVE: CASE EVENT DATE: 2019
